FAERS Safety Report 9890330 (Version 3)
Quarter: 2014Q2

REPORT INFORMATION
  Report Type: Spontaneous
  Country: US (occurrence: US)
  Receive Date: 20140212
  Receipt Date: 20140606
  Transmission Date: 20141212
  Serious: Yes (Hospitalization)
  Sender: FDA-Public Use
  Company Number: US-BEH-2013038202

PATIENT
  Age: 28 Year
  Sex: Female
  Weight: 85 kg

DRUGS (16)
  1. HIZENTRA [Suspect]
     Dosage: FROM MAR-2013 TO NOV-2013
     Route: 058
  2. HIZENTRA [Suspect]
     Indication: IMMUNODEFICIENCY COMMON VARIABLE
     Dosage: 4 GM 20 ML VIAL
     Route: 058
  3. HIZENTRA [Suspect]
     Dosage: 4 GM 20 ML VIAL;3-4 SITES OVER 1.5-3 HOURS
     Route: 058
  4. HIZENTRA [Suspect]
     Indication: COMBINED IMMUNODEFICIENCY
     Dosage: 10-NOV--2013 INFUSION DATE
     Route: 058
  5. MAXALT [Concomitant]
  6. IMITREX [Concomitant]
  7. MULTIVITAMIN [Concomitant]
  8. ACETAMINOPHEN [Concomitant]
  9. DIPHENHYDRAMINE [Concomitant]
  10. EPIPEN [Concomitant]
  11. LIDOCAINE PRILOCAINE [Concomitant]
  12. LOESTRIN [Concomitant]
  13. SINGULAIR [Concomitant]
  14. TOPAMAX [Concomitant]
  15. ALVESCO [Concomitant]
  16. XYZAL [Concomitant]

REACTIONS (20)
  - Drug hypersensitivity [Unknown]
  - Infusion site swelling [Unknown]
  - Headache [Unknown]
  - Injection site erythema [Unknown]
  - Headache [Unknown]
  - Pyrexia [Unknown]
  - Headache [Unknown]
  - Injection site pain [Unknown]
  - Injection site erythema [Unknown]
  - Infusion site erythema [Unknown]
  - Infusion site swelling [Unknown]
  - Injection site swelling [Unknown]
  - Injection site pruritus [Unknown]
  - Injection site pain [Unknown]
  - Flushing [Unknown]
  - Drug hypersensitivity [Unknown]
  - Drug hypersensitivity [Unknown]
  - Migraine [Recovered/Resolved]
  - Infusion site urticaria [Recovered/Resolved]
  - Infusion site warmth [Recovered/Resolved]
